FAERS Safety Report 16133077 (Version 5)
Quarter: 2020Q1

REPORT INFORMATION
  Report Type: Spontaneous
  Country: US (occurrence: US)
  Receive Date: 20190329
  Receipt Date: 20200317
  Transmission Date: 20200409
  Serious: Yes (Other)
  Sender: FDA-Public Use
  Company Number: US-JNJFOC-20190240031

PATIENT
  Age: 63 Year
  Sex: Female
  Weight: 77.18 kg

DRUGS (8)
  1. IMODIUM [Concomitant]
     Active Substance: LOPERAMIDE HYDROCHLORIDE
     Indication: DIARRHOEA
     Route: 048
  2. VITAMIN D [Concomitant]
     Active Substance: VITAMIN D NOS
     Indication: OSTEOPOROSIS
     Route: 048
     Dates: start: 201704
  3. FENTANYL. [Suspect]
     Active Substance: FENTANYL
     Indication: SCOLIOSIS
     Route: 062
  4. FENTANYL. [Suspect]
     Active Substance: FENTANYL
     Route: 062
  5. TYLENOL [Suspect]
     Active Substance: ACETAMINOPHEN
     Indication: PAIN
     Route: 048
     Dates: start: 2004
  6. FENTANYL. [Suspect]
     Active Substance: FENTANYL
     Route: 062
  7. CALCIUM [Concomitant]
     Active Substance: CALCIUM
     Indication: OSTEOPOROSIS
     Route: 048
     Dates: start: 201704
  8. MESTINON [Concomitant]
     Active Substance: PYRIDOSTIGMINE BROMIDE
     Indication: MYASTHENIA GRAVIS
     Route: 048
     Dates: start: 2016

REACTIONS (27)
  - Hip arthroplasty [Unknown]
  - Vitamin D deficiency [Not Recovered/Not Resolved]
  - Psoriasis [Unknown]
  - Myasthenia gravis [Not Recovered/Not Resolved]
  - Weight decreased [Recovered/Resolved]
  - Flatulence [Not Recovered/Not Resolved]
  - Weight increased [Not Recovered/Not Resolved]
  - Kyphosis [Unknown]
  - Product use in unapproved indication [Unknown]
  - Malaise [Not Recovered/Not Resolved]
  - Dry skin [Not Recovered/Not Resolved]
  - Eating disorder [Not Recovered/Not Resolved]
  - Hepatic function abnormal [Recovered/Resolved]
  - Osteoarthritis [Not Recovered/Not Resolved]
  - Osteoporosis [Not Recovered/Not Resolved]
  - Blood cholesterol increased [Not Recovered/Not Resolved]
  - Abdominal pain upper [Not Recovered/Not Resolved]
  - Nervousness [Not Recovered/Not Resolved]
  - Off label use [Unknown]
  - Constipation [Recovered/Resolved]
  - Withdrawal syndrome [Unknown]
  - Diarrhoea [Not Recovered/Not Resolved]
  - Arthralgia [Recovered/Resolved]
  - Nervous system disorder [Unknown]
  - Onychoclasis [Not Recovered/Not Resolved]
  - Eczema [Unknown]
  - Diplopia [Unknown]

NARRATIVE: CASE EVENT DATE: 2004
